FAERS Safety Report 25669029 (Version 1)
Quarter: 2025Q3

REPORT INFORMATION
  Report Type: Report from Study
  Country: US (occurrence: US)
  Receive Date: 20250812
  Receipt Date: 20250812
  Transmission Date: 20251021
  Serious: No
  Sender: SUNOVION
  Company Number: US-SUMITOMO PHARMA SWITZERLAND GMBH-2025SPA010111

PATIENT
  Age: 74 Year
  Sex: Male

DRUGS (1)
  1. ORGOVYX [Suspect]
     Active Substance: RELUGOLIX
     Indication: Prostate cancer
     Route: 048

REACTIONS (8)
  - Micturition urgency [Recovering/Resolving]
  - Testicular disorder [Unknown]
  - Muscle atrophy [Unknown]
  - Dysphonia [Unknown]
  - Nocturia [Recovering/Resolving]
  - Drug hypersensitivity [Unknown]
  - Back pain [Unknown]
  - Hot flush [Unknown]
